FAERS Safety Report 9167647 (Version 1)
Quarter: 2013Q1

REPORT INFORMATION
  Report Type: Spontaneous
  Country: FR (occurrence: None)
  Receive Date: 20130304
  Receipt Date: 20130304
  Transmission Date: 20140127
  Serious: No
  Sender: FDA-Public Use
  Company Number: ADR-2013-00329

PATIENT
  Sex: Female

DRUGS (2)
  1. LIORESAL [Suspect]
  2. NEURONTIN (GABAPENTIN) [Suspect]

REACTIONS (3)
  - Maternal drugs affecting foetus [None]
  - Anencephaly [None]
  - Abortion induced [None]
